FAERS Safety Report 23712447 (Version 4)
Quarter: 2025Q2

REPORT INFORMATION
  Report Type: Spontaneous
  Country: US (occurrence: US)
  Receive Date: 20240405
  Receipt Date: 20250418
  Transmission Date: 20250716
  Serious: Yes (Other)
  Sender: BAYER HEALTHCARE PHARMACEUTICALS INC.
  Company Number: US-BAYER-2024A045482

PATIENT
  Age: 25 Year
  Sex: Female
  Weight: 68 kg

DRUGS (2)
  1. MIRENA [Suspect]
     Active Substance: LEVONORGESTREL
     Indication: Intrauterine contraception
     Dosage: 20?G/DAY
     Route: 015
     Dates: start: 202402
  2. TAKHZYRO [Suspect]
     Active Substance: LANADELUMAB-FLYO

REACTIONS (5)
  - Adverse event [Recovered/Resolved]
  - Adverse event [Recovered/Resolved]
  - Adverse event [None]
  - Weight decreased [None]
  - Abdominal distension [None]

NARRATIVE: CASE EVENT DATE: 20240318
